FAERS Safety Report 6191482-6 (Version None)
Quarter: 2009Q2

REPORT INFORMATION
  Report Type: 
  Country: None (occurrence: None)
  Receive Date: 20090515
  Receipt Date: 20090508
  Transmission Date: 20091009
  Serious: Yes (Other)
  Sender: FDA-Public Use
  Company Number: JP-JNJFOC-20090502009

PATIENT
  Age: 3 Decade
  Sex: Male

DRUGS (8)
  1. ITRIZOLE [Suspect]
     Indication: LIVER ABSCESS
     Route: 048
  2. ITRIZOLE [Suspect]
     Indication: SPLENIC ABSCESS
     Route: 048
  3. ITRIZOLE [Suspect]
     Route: 048
  4. ITRIZOLE [Suspect]
     Route: 048
  5. CYCLOSPORINE [Suspect]
     Indication: PROPHYLAXIS AGAINST TRANSPLANT REJECTION
     Route: 041
  6. AMPHOTERICIN B [Suspect]
     Route: 065
  7. AMPHOTERICIN B [Suspect]
     Indication: DRUG USE FOR UNKNOWN INDICATION
     Route: 065
  8. FLUCONAZOLE [Concomitant]
     Route: 065

REACTIONS (7)
  - C-REACTIVE PROTEIN INCREASED [None]
  - DRUG INEFFECTIVE [None]
  - LIVER ABSCESS [None]
  - MALAISE [None]
  - NAUSEA [None]
  - SPLENIC ABSCESS [None]
  - VOMITING [None]
